FAERS Safety Report 21903918 (Version 3)
Quarter: 2023Q1

REPORT INFORMATION
  Report Type: Spontaneous
  Country: CA (occurrence: CA)
  Receive Date: 20230124
  Receipt Date: 20230307
  Transmission Date: 20230417
  Serious: Yes (Hospitalization)
  Sender: FDA-Public Use
  Company Number: CA-GLAXOSMITHKLINE-CA2023AMR007398

PATIENT

DRUGS (2)
  1. BENLYSTA [Suspect]
     Active Substance: BELIMUMAB
     Indication: Systemic lupus erythematosus
     Dosage: 500 MG, Z (Q4 WEEKS)
     Route: 042
     Dates: start: 20230104
  2. BENLYSTA [Suspect]
     Active Substance: BELIMUMAB
     Dosage: 500 MG, Z (ONCE Q4 WEEKS)
     Route: 042
     Dates: start: 20230104

REACTIONS (3)
  - Headache [Unknown]
  - Pruritus [Unknown]
  - COVID-19 [Recovered/Resolved]

NARRATIVE: CASE EVENT DATE: 20230104
